FAERS Safety Report 23384922 (Version 1)
Quarter: 2024Q1

REPORT INFORMATION
  Report Type: Other
  Country: IE (occurrence: None)
  Receive Date: 20240109
  Receipt Date: 20240109
  Transmission Date: 20240410
  Serious: No
  Sender: FDA-Public Use
  Company Number: IE-ROCHE-3487706

PATIENT
  Sex: Female

DRUGS (1)
  1. OCREVUS [Suspect]
     Active Substance: OCRELIZUMAB
     Indication: Multiple sclerosis
     Route: 042

REACTIONS (7)
  - Multiple sclerosis [Unknown]
  - Visual impairment [Unknown]
  - Fatigue [Unknown]
  - Oral herpes [Unknown]
  - Rash [Unknown]
  - Cognitive disorder [Unknown]
  - Hypoacusis [Unknown]
